FAERS Safety Report 10035027 (Version 1)
Quarter: 2014Q1

REPORT INFORMATION
  Report Type: Spontaneous
  Country: US (occurrence: None)
  Receive Date: 20140306
  Receipt Date: 20140306
  Transmission Date: 20141002
  Serious: Yes (Other)
  Sender: FDA-Public Use
  Company Number: 163-21880-13011839

PATIENT
  Age: 80 Year
  Sex: Female
  Weight: 67.13 kg

DRUGS (12)
  1. REVLIMID [Suspect]
     Indication: PLASMA CELL MYELOMA
     Dosage: 20 MG, 1 IN 1 D, PO
     Route: 048
     Dates: start: 201212
  2. BLOOD (BLOOD AND RELATED PRODUCTS) [Concomitant]
  3. DECADRON (DEXAMETHASONE) [Concomitant]
  4. AMLODIPINE BESYLATE [Concomitant]
  5. CAPTOPRIL [Concomitant]
  6. CLONIDINE HCL [Concomitant]
  7. INDAPAMIDE [Concomitant]
  8. JANTOVEN [Concomitant]
  9. KLOR-CON [Concomitant]
  10. LIPITOR (ATORVASTATIN) [Concomitant]
  11. TRICOR (FENOFIBRATE) [Concomitant]
  12. FAMCICLOVIR [Concomitant]

REACTIONS (2)
  - Haemoglobin decreased [None]
  - Platelet count decreased [None]
